FAERS Safety Report 5889349-3 (Version None)
Quarter: 2008Q3

REPORT INFORMATION
  Report Type: 
  Country: None (occurrence: None)
  Receive Date: 20080919
  Receipt Date: 20080908
  Transmission Date: 20090109
  Serious: Yes (Hospitalization, Other)
  Sender: FDA-Public Use
  Company Number: US-ELI_LILLY_AND_COMPANY-US200809002322

PATIENT
  Sex: Male
  Weight: 91.156 kg

DRUGS (16)
  1. BYETTA [Suspect]
     Indication: TYPE 2 DIABETES MELLITUS
     Dosage: 5 UG, 2/D
     Route: 058
     Dates: start: 20061024, end: 20061119
  2. BYETTA [Suspect]
     Dosage: 10 UG, 2/D
     Route: 058
     Dates: start: 20061120, end: 20080817
  3. GLUCOPHAGE [Concomitant]
     Indication: TYPE 2 DIABETES MELLITUS
     Dosage: 1000 MG, 2/D
     Route: 048
  4. MS CONTIN [Concomitant]
     Indication: PAIN
     Dosage: 30 MG, 2/D
     Route: 048
     Dates: start: 20020101
  5. PERCOCET [Concomitant]
     Indication: BREAKTHROUGH PAIN
     Dosage: UNK, 4/D
     Route: 048
  6. ADIPEX [Concomitant]
     Indication: WEIGHT DECREASED
     Dates: start: 20080501
  7. FLEXERIL [Concomitant]
     Dosage: 10 MG, 3/D
     Route: 048
  8. FENOFIBRATE [Concomitant]
     Indication: BLOOD TRIGLYCERIDES INCREASED
     Dosage: UNK, DAILY (1/D)
     Route: 048
  9. DAYPRO [Concomitant]
     Dosage: 1200 MG, DAILY (1/D)
     Route: 048
  10. PRINIVIL [Concomitant]
     Dosage: 20 MG, DAILY (1/D)
     Route: 048
  11. PROZAC [Concomitant]
     Dosage: 80 MG, DAILY (1/D)
     Route: 048
  12. WELLBUTRIN [Concomitant]
     Dosage: 150 MG, 2/D
     Route: 048
  13. ZOCOR [Concomitant]
     Dosage: 80 MG, EACH EVENING
     Route: 048
     Dates: start: 20010601
  14. AMITRIPTYLINE HCL [Concomitant]
     Dosage: 100 MG, EACH EVENING
     Route: 048
  15. COLACE [Concomitant]
     Dosage: UNK, 2/D
     Route: 048
  16. ZANTAC [Concomitant]
     Dosage: 150 MG, 2/D
     Route: 048

REACTIONS (6)
  - DEHYDRATION [None]
  - DIABETIC KETOACIDOSIS [None]
  - DYSPHAGIA [None]
  - HYPOVOLAEMIA [None]
  - PANCREATITIS [None]
  - WEIGHT DECREASED [None]
